FAERS Safety Report 6031690-8 (Version None)
Quarter: 2009Q1

REPORT INFORMATION
  Report Type: 
  Country: None (occurrence: None)
  Receive Date: 20090108
  Receipt Date: 20090105
  Transmission Date: 20090719
  Serious: Yes (Other)
  Sender: FDA-Public Use
  Company Number: A0754809A

PATIENT
  Sex: Female

DRUGS (7)
  1. ADVAIR DISKUS 250/50 [Suspect]
     Indication: ASTHMA
     Dosage: 1PUFF TWICE PER DAY
     Route: 055
  2. DIOVAN [Concomitant]
  3. TRIAMTERENE [Concomitant]
  4. LEVOXYL [Concomitant]
  5. COMBIVENT [Concomitant]
  6. PROAIR HFA [Concomitant]
  7. ALBUTEROL [Concomitant]

REACTIONS (5)
  - BLOOD CREATININE INCREASED [None]
  - BLOOD UREA INCREASED [None]
  - MULTIPLE MYELOMA [None]
  - RED BLOOD CELL ABNORMALITY [None]
  - RENAL DISORDER [None]
